FAERS Safety Report 12207624 (Version 2)
Quarter: 2016Q1

REPORT INFORMATION
  Report Type: Spontaneous
  Country: US (occurrence: US)
  Receive Date: 20160324
  Receipt Date: 20160328
  Transmission Date: 20160526
  Serious: Yes (Life-Threatening, Hospitalization, Other)
  Sender: FDA-Public Use
  Company Number: US-MDT-ADR-2016-00550

PATIENT
  Age: 71 Year
  Sex: Male

DRUGS (11)
  1. BACLOFEN. [Suspect]
     Active Substance: BACLOFEN
     Route: 048
  2. COMPOUNDED BACLOFEN [Suspect]
     Active Substance: BACLOFEN
     Dosage: 195.14 MCG/DAY
     Route: 037
  3. DILAUDID [Suspect]
     Active Substance: HYDROMORPHONE HYDROCHLORIDE
     Dosage: 12.008MG/DAY
     Route: 037
  4. LASIX [Suspect]
     Active Substance: FUROSEMIDE
     Route: 048
  5. COMPOUNDED BACLOFEN [Suspect]
     Active Substance: BACLOFEN
     Dosage: 360.18MCG/DAY
     Route: 037
     Dates: start: 20151218
  6. NORCO [Suspect]
     Active Substance: ACETAMINOPHEN\HYDROCODONE BITARTRATE
     Route: 048
  7. GABAPENTIN. [Suspect]
     Active Substance: GABAPENTIN
     Route: 048
  8. ESCITALOPRAM [Suspect]
     Active Substance: ESCITALOPRAM OXALATE
     Route: 048
  9. ONDANSETRON [Suspect]
     Active Substance: ONDANSETRON
     Route: 048
  10. CYMBALTA [Suspect]
     Active Substance: DULOXETINE HYDROCHLORIDE
     Route: 048
  11. DILAUDID [Suspect]
     Active Substance: HYDROMORPHONE HYDROCHLORIDE
     Dosage: 9.006 MG/DAY
     Route: 037

REACTIONS (1)
  - Sedation [Unknown]
